FAERS Safety Report 7934089-X (Version None)
Quarter: 2011Q4

REPORT INFORMATION
  Report Type: 
  Country: None (occurrence: None)
  Receive Date: 20111122
  Receipt Date: 20111109
  Transmission Date: 20120403
  Serious: No
  Sender: FDA-Public Use
  Company Number: US-B.I. PHARMACEUTICALS,INC./RIDGEFIELD-2011-BP-24455BP

PATIENT
  Sex: Female

DRUGS (7)
  1. POTASSIUM [Concomitant]
     Dosage: 10 MEQ
  2. FUROSEMIDE [Concomitant]
     Dosage: 60 MG
  3. CENTRUM DAILY VITAMIN [Concomitant]
  4. PRADAXA [Suspect]
     Indication: ATRIAL FIBRILLATION
     Dosage: 300 MG
     Route: 048
  5. CARTIA XT [Concomitant]
     Dosage: 120 MG
  6. LEVOTHYROXINE SODIUM [Concomitant]
     Indication: THYROID DISORDER
     Dosage: 0.05 MG
  7. RAMIPRIL [Concomitant]
     Dosage: 2.5 MG

REACTIONS (1)
  - ALOPECIA [None]
